FAERS Safety Report 11458159 (Version 2)
Quarter: 2015Q3

REPORT INFORMATION
  Report Type: Report from Study
  Country: US (occurrence: US)
  Receive Date: 20150904
  Receipt Date: 20150922
  Transmission Date: 20151125
  Serious: Yes (Death, Other)
  Sender: FDA-Public Use
  Company Number: US-AMGEN-USASL2015090854

PATIENT
  Age: 60 Year
  Sex: Female
  Weight: 63 kg

DRUGS (30)
  1. DEXAMETHASONE. [Concomitant]
     Active Substance: DEXAMETHASONE
     Indication: SEIZURE
     Dosage: 4 MG, 1 AS DIRECTED BID DAY BEFORE CHEMO AND 3 DAYS AFTER CHEMO
     Route: 048
     Dates: start: 20150608
  2. MEDROL [Concomitant]
     Active Substance: METHYLPREDNISOLONE
     Dosage: 4 MG, 1 AS DIRECTED
     Route: 048
     Dates: start: 20150227
  3. SILVADENE [Concomitant]
     Active Substance: SILVER SULFADIAZINE
     Dosage: 1 UNIT, AS DIRECTED
     Route: 061
     Dates: start: 20150112
  4. PROTONIX                           /00661201/ [Concomitant]
     Active Substance: OMEPRAZOLE
     Indication: PROPHYLAXIS
     Dosage: UNK
  5. CARBOPLATIN. [Suspect]
     Active Substance: CARBOPLATIN
     Indication: ADENOSQUAMOUS CELL LUNG CANCER STAGE IV
  6. EMEND                              /06343802/ [Concomitant]
     Dosage: 150 MG, EVERY 21 DAYS
     Route: 042
     Dates: start: 20141201
  7. PACLITAXEL. [Concomitant]
     Active Substance: PACLITAXEL
     Indication: ADENOSQUAMOUS CELL LUNG CANCER STAGE IV
  8. CISPLATIN. [Concomitant]
     Active Substance: CISPLATIN
     Indication: METASTASES TO LYMPH NODES
  9. XGEVA [Suspect]
     Active Substance: DENOSUMAB
     Indication: METASTASES TO BONE
     Dosage: UNK
     Route: 065
  10. EFFEXOR [Concomitant]
     Active Substance: VENLAFAXINE HYDROCHLORIDE
     Dosage: 37.5 MG, 1 DAILY
     Route: 048
     Dates: start: 20150610
  11. FAMOTIDINE. [Concomitant]
     Active Substance: FAMOTIDINE
     Dosage: 20 MG, 1 DAILY
     Route: 048
     Dates: start: 20150227
  12. FERROUS SULFATE [Concomitant]
     Active Substance: FERROUS SULFATE\FERROUS SULFATE, DRIED
     Dosage: 325(65) MG, 1 BID
     Route: 048
     Dates: start: 20150422
  13. PROCHLORPERAZINE MALEATE. [Concomitant]
     Active Substance: PROCHLORPERAZINE MALEATE
     Indication: NAUSEA
     Dosage: 10 MG, Q6H PRN
     Route: 048
     Dates: start: 20141125
  14. PACLITAXEL. [Concomitant]
     Active Substance: PACLITAXEL
     Indication: METASTASES TO LYMPH NODES
  15. CARBOPLATIN. [Suspect]
     Active Substance: CARBOPLATIN
     Indication: METASTASES TO LYMPH NODES
  16. COLACE [Concomitant]
     Active Substance: DOCUSATE SODIUM
     Dosage: 100 MG,1 BID PRN
     Route: 048
     Dates: start: 20150520
  17. LEVOFLOXACIN. [Concomitant]
     Active Substance: LEVOFLOXACIN
     Dosage: 500 MG, 1 DAILY
     Route: 048
     Dates: start: 20150513
  18. ONDANSETRON HCL [Concomitant]
     Active Substance: ONDANSETRON HYDROCHLORIDE
     Indication: NAUSEA
     Dosage: 8 MG, Q8H PRN
     Route: 048
     Dates: start: 20141125
  19. CARBOPLATIN. [Suspect]
     Active Substance: CARBOPLATIN
     Indication: NON-SMALL CELL LUNG CANCER STAGE IV
     Dosage: UNK
     Route: 065
  20. CALCIUM [Concomitant]
     Active Substance: CALCIUM
     Dosage: UNK, BID
  21. BENADRYL [Concomitant]
     Active Substance: DIPHENHYDRAMINE HYDROCHLORIDE
     Dosage: 25 MG, 1 TID
     Route: 048
     Dates: start: 20150227
  22. PACLITAXEL. [Concomitant]
     Active Substance: PACLITAXEL
     Indication: NON-SMALL CELL LUNG CANCER STAGE IV
     Dosage: UNK
  23. CISPLATIN. [Concomitant]
     Active Substance: CISPLATIN
     Indication: ADENOSQUAMOUS CELL LUNG CANCER STAGE IV
  24. VITAMIN D                          /00107901/ [Concomitant]
     Active Substance: ERGOCALCIFEROL
     Dosage: UNK, BID
  25. ALPRAZOLAM. [Concomitant]
     Active Substance: ALPRAZOLAM
     Indication: ANXIETY
     Dosage: 0.25 MG, 1 TID PRN
     Route: 048
     Dates: start: 20150701
  26. METOPROLOL SUCCINATE. [Concomitant]
     Active Substance: METOPROLOL SUCCINATE
     Dosage: 25 MG, DAILY
     Route: 048
     Dates: start: 20141210
  27. NYSTATIN. [Concomitant]
     Active Substance: NYSTATIN
     Dosage: 1 G, TID
     Route: 061
     Dates: start: 20150112
  28. FUSION PLUS [Concomitant]
     Active Substance: IRON\VITAMIN B
     Indication: ANAEMIA
     Dosage: UNK
  29. PROCRIT [Suspect]
     Active Substance: ERYTHROPOIETIN
     Indication: PRODUCT USED FOR UNKNOWN INDICATION
     Dosage: 40000/1ML, WEEKLY
     Route: 065
  30. CISPLATIN. [Concomitant]
     Active Substance: CISPLATIN
     Indication: NON-SMALL CELL LUNG CANCER STAGE IV

REACTIONS (40)
  - Non-small cell lung cancer stage IV [Not Recovered/Not Resolved]
  - Pathological fracture [Unknown]
  - Epilepsy [Unknown]
  - Lymphadenopathy [Unknown]
  - Rash [Unknown]
  - Blood calcium decreased [Unknown]
  - Protein total decreased [Unknown]
  - Rhonchi [Unknown]
  - Asthenia [Unknown]
  - Dysphagia [Unknown]
  - Cough [Unknown]
  - Adenosquamous cell lung cancer stage IV [Not Recovered/Not Resolved]
  - Metastases to adrenals [Not Recovered/Not Resolved]
  - Metastases to liver [Not Recovered/Not Resolved]
  - Blood sodium decreased [Unknown]
  - Skin reaction [Unknown]
  - Fatigue [Unknown]
  - Metastases to bone [Not Recovered/Not Resolved]
  - Neutropenia [Recovering/Resolving]
  - Nausea [Not Recovered/Not Resolved]
  - Arthralgia [Unknown]
  - Blood phosphorus decreased [Unknown]
  - Blood creatinine decreased [Unknown]
  - Metastases to central nervous system [Not Recovered/Not Resolved]
  - White blood cell count increased [Unknown]
  - Viral rash [Unknown]
  - Death [Fatal]
  - Malignant neoplasm progression [Not Recovered/Not Resolved]
  - Dysarthria [Unknown]
  - Metastases to lymph nodes [Not Recovered/Not Resolved]
  - Anaemia [Not Recovered/Not Resolved]
  - Anxiety [Unknown]
  - Blood albumin decreased [Unknown]
  - Blood alkaline phosphatase increased [Unknown]
  - Neutrophil count increased [Unknown]
  - Confusional state [Unknown]
  - Depression [Unknown]
  - Weight decreased [Unknown]
  - Musculoskeletal pain [Unknown]
  - Platelet count decreased [Unknown]

NARRATIVE: CASE EVENT DATE: 20141113
